FAERS Safety Report 15833574 (Version 1)
Quarter: 2019Q1

REPORT INFORMATION
  Report Type: Spontaneous
  Country: FR (occurrence: FR)
  Receive Date: 20190116
  Receipt Date: 20190116
  Transmission Date: 20190417
  Serious: Yes (Hospitalization)
  Sender: FDA-Public Use
  Company Number: FR-MYLANLABS-2019M1003390

PATIENT

DRUGS (2)
  1. CYTEAL [Interacting]
     Active Substance: CHLORHEXIDINE GLUCONATE\CHLOROCRESOL\HEXAMIDINE DIISETHIONATE
     Indication: VULVOVAGINAL MYCOTIC INFECTION
     Dosage: QD, 1 APPLICATION
     Route: 061
     Dates: start: 20180626, end: 20180626
  2. ECONAZOLE. [Suspect]
     Active Substance: ECONAZOLE NITRATE
     Indication: VULVOVAGINAL MYCOTIC INFECTION
     Dosage: UNK
     Route: 065

REACTIONS (4)
  - Burning sensation mucosal [Recovering/Resolving]
  - Application site haemorrhage [Recovering/Resolving]
  - Drug interaction [Unknown]
  - Vulvovaginal pruritus [Recovering/Resolving]

NARRATIVE: CASE EVENT DATE: 20180626
